FAERS Safety Report 8106715-6 (Version None)
Quarter: 2011Q4

REPORT INFORMATION
  Report Type: 
  Country: None (occurrence: None)
  Receive Date: 20111222
  Receipt Date: 20111108
  Transmission Date: 20120403
  Serious: Yes (Hospitalization)
  Sender: FDA-Public Use
  Company Number: UTC-012206

PATIENT
  Age: 54 Year
  Sex: Male
  Weight: 88.64 kg

DRUGS (4)
  1. TYVASO [Suspect]
     Indication: PULMONARY HYPERTENSION
     Dosage: 72 MCG (18 MCG,4 IN 1 D),INHALATION ; 120 MCG (30 MCG,4 IN 1 D),INHALATION
     Route: 055
     Dates: start: 20110616
  2. TYVASO [Suspect]
     Indication: PULMONARY HYPERTENSION
     Dosage: 72 MCG (18 MCG,4 IN 1 D),INHALATION ; 120 MCG (30 MCG,4 IN 1 D),INHALATION
     Route: 055
     Dates: start: 20110706
  3. OXYGEN (OXYGEN) [Concomitant]
  4. DIURETICS (DIURETICS) [Concomitant]

REACTIONS (9)
  - OXYGEN CONSUMPTION DECREASED [None]
  - MALAISE [None]
  - INSOMNIA [None]
  - LETHARGY [None]
  - DYSPNOEA [None]
  - OEDEMA [None]
  - FATIGUE [None]
  - MOTOR DYSFUNCTION [None]
  - SYNCOPE [None]
